FAERS Safety Report 17686325 (Version 1)
Quarter: 2020Q2

REPORT INFORMATION
  Report Type: Spontaneous
  Country: US (occurrence: US)
  Receive Date: 20200420
  Receipt Date: 20200420
  Transmission Date: 20200714
  Serious: Yes (Death, Other)
  Sender: FDA-Public Use
  Company Number: NVSC2020US100335

PATIENT
  Age: 25 Year
  Sex: Male
  Weight: 36 kg

DRUGS (6)
  1. DELAMANID [Suspect]
     Active Substance: DELAMANID
     Indication: PULMONARY TUBERCULOSIS
     Dosage: 200 MG
     Route: 048
     Dates: start: 20180907
  2. LINEZOLID. [Suspect]
     Active Substance: LINEZOLID
     Indication: PULMONARY TUBERCULOSIS
     Dosage: 600 MG
     Route: 048
     Dates: start: 20180907
  3. CLOFAZIMINE [Suspect]
     Active Substance: CLOFAZIMINE
     Indication: PULMONARY TUBERCULOSIS
     Dosage: 200 MG
     Route: 048
     Dates: start: 20180907
  4. IMIPENEM [Suspect]
     Active Substance: IMIPENEM
     Indication: PULMONARY TUBERCULOSIS
     Dosage: 2000 MG
     Route: 042
     Dates: start: 20180907, end: 20181112
  5. AMOXICILLIN CLAVULANIC ACID [Suspect]
     Active Substance: AMOXICILLIN\CLAVULANIC ACID
     Indication: PULMONARY TUBERCULOSIS
     Dosage: 2000 MG
     Route: 048
     Dates: start: 20180907, end: 20181112
  6. BEDAQUILINE [Suspect]
     Active Substance: BEDAQUILINE
     Indication: PULMONARY TUBERCULOSIS
     Dosage: 400 (200) MG
     Route: 048
     Dates: start: 20180907

REACTIONS (3)
  - Incorrect product administration duration [Unknown]
  - Blood potassium increased [Recovering/Resolving]
  - Cor pulmonale [Fatal]

NARRATIVE: CASE EVENT DATE: 20181206
